FAERS Safety Report 24269749 (Version 1)
Quarter: 2024Q3

REPORT INFORMATION
  Report Type: Spontaneous
  Country: US (occurrence: US)
  Receive Date: 20240830
  Receipt Date: 20240830
  Transmission Date: 20241017
  Serious: No
  Sender: ENDO
  Company Number: ENDG23-05884

PATIENT

DRUGS (5)
  1. PREDNISONE [Suspect]
     Active Substance: PREDNISONE
     Indication: Product used for unknown indication
     Dosage: 8 MILLIGRAM, UNKNOWN
     Route: 065
     Dates: start: 20231009
  2. PREDNISONE [Suspect]
     Active Substance: PREDNISONE
     Dosage: 4 MILLIGRAM, UNKNOWN
     Route: 065
     Dates: start: 202309
  3. PREDNISONE [Suspect]
     Active Substance: PREDNISONE
     Dosage: 6 MILLIGRAM, UNKNOWN
     Route: 065
  4. AMOXICILLIN [Suspect]
     Active Substance: AMOXICILLIN
     Indication: Product used for unknown indication
     Dosage: UNK UNKNOWN, UNKNOWN
     Route: 065
  5. ERYTHROMYCIN [Suspect]
     Active Substance: ERYTHROMYCIN
     Indication: Product used for unknown indication
     Dosage: UNK UNKNOWN, UNKNOWN
     Route: 065

REACTIONS (1)
  - Oropharyngeal candidiasis [Recovered/Resolved]
